FAERS Safety Report 14375484 (Version 1)
Quarter: 2018Q1

REPORT INFORMATION
  Report Type: Spontaneous
  Country: US (occurrence: US)
  Receive Date: 20180110
  Receipt Date: 20180110
  Transmission Date: 20180509
  Serious: Yes (Other)
  Sender: FDA-Public Use
  Company Number: None

PATIENT
  Age: 51 Year
  Sex: Male
  Weight: 58.5 kg

DRUGS (1)
  1. DULOXETINE DR60MG [Suspect]
     Active Substance: DULOXETINE
     Dosage: ?          QUANTITY:1 CAPSULE(S);?
     Route: 048
     Dates: start: 20171224, end: 20180110

REACTIONS (7)
  - Product substitution issue [None]
  - Headache [None]
  - Hypersensitivity [None]
  - Disorientation [None]
  - Mood altered [None]
  - Asthenia [None]
  - Dizziness [None]

NARRATIVE: CASE EVENT DATE: 20180109
